FAERS Safety Report 8523010-1 (Version None)
Quarter: 2012Q3

REPORT INFORMATION
  Report Type: 
  Country: None (occurrence: None)
  Receive Date: 20120720
  Receipt Date: 20100830
  Transmission Date: 20120928
  Serious: Yes (Hospitalization)
  Sender: FDA-Public Use
  Company Number: US-BAYER-201012971NA

PATIENT
  Age: 28 Year
  Sex: Female
  Weight: 114 kg

DRUGS (10)
  1. DROSPIRENONE AND ETHINYL ESTRADIOL [Suspect]
     Dosage: UNK
     Dates: start: 20090819, end: 20100809
  2. LEVOTHYROXINE SODIUM [Concomitant]
     Dates: start: 20090218
  3. DROSPIRENONE AND ETHINYL ESTRADIOL [Suspect]
     Indication: CONTRACEPTION
     Dosage: UNK
     Route: 048
     Dates: start: 20080724, end: 20091215
  4. AZITHROMYCIN [Concomitant]
     Dates: start: 20090303
  5. YASMIN [Suspect]
     Indication: POLYCYSTIC OVARIES
  6. FLUOXETINE HCL [Concomitant]
     Indication: AFFECTIVE DISORDER
     Dates: start: 20070101, end: 20090615
  7. SYNTHROID [Concomitant]
  8. PROZAC [Concomitant]
  9. YAZ [Suspect]
     Indication: PRODUCT USED FOR UNKNOWN INDICATION
     Route: 048
  10. YASMIN [Suspect]
     Indication: CONTRACEPTION
     Route: 048
     Dates: start: 20080101, end: 20080723

REACTIONS (7)
  - NAUSEA [None]
  - CONSTIPATION [None]
  - GALLBLADDER DISORDER [None]
  - CHOLECYSTITIS ACUTE [None]
  - ABDOMINAL PAIN UPPER [None]
  - CHOLELITHIASIS [None]
  - VOMITING [None]
